FAERS Safety Report 17767602 (Version 2)
Quarter: 2020Q2

REPORT INFORMATION
  Report Type: Spontaneous
  Country: US (occurrence: US)
  Receive Date: 20200511
  Receipt Date: 20200526
  Transmission Date: 20200714
  Serious: No
  Sender: FDA-Public Use
  Company Number: US-BAUSCH-BL-2020-011253

PATIENT
  Age: 73 Year
  Sex: Female
  Weight: 54.48 kg

DRUGS (7)
  1. ERYTHROMYCIN OPHTHALMIC OINTMENT USP 0.5% [Suspect]
     Active Substance: ERYTHROMYCIN
     Indication: EYE PRURITUS
     Dosage: ON 06-APR-2020 OR 07-APR-2020 ^ONLY APPLIED ERYTHROMYCIN ON BOTH EYES FOR ONE DAY^
     Route: 047
     Dates: start: 202004, end: 202004
  2. ALAWAY [Suspect]
     Active Substance: KETOTIFEN FUMARATE
     Indication: EYE PRURITUS
     Route: 047
     Dates: start: 20200409
  3. ERYTHROMYCIN OPHTHALMIC OINTMENT USP 0.5% [Suspect]
     Active Substance: ERYTHROMYCIN
     Indication: EYE IRRITATION
  4. ALAWAY [Suspect]
     Active Substance: KETOTIFEN FUMARATE
     Indication: SUPERFICIAL INJURY OF EYE
  5. ALAWAY [Suspect]
     Active Substance: KETOTIFEN FUMARATE
     Indication: EYE IRRITATION
  6. ERYTHROMYCIN OPHTHALMIC OINTMENT USP 0.5% [Suspect]
     Active Substance: ERYTHROMYCIN
     Indication: CONJUNCTIVITIS
     Dosage: USED IN RIGHT EYE, DISCONTINUED AT SOME POINT
     Route: 047
     Dates: start: 201804
  7. ERYTHROMYCIN OPHTHALMIC OINTMENT USP 0.5% [Suspect]
     Active Substance: ERYTHROMYCIN
     Indication: SUPERFICIAL INJURY OF EYE

REACTIONS (6)
  - Superficial injury of eye [Recovering/Resolving]
  - Wrong technique in product usage process [Unknown]
  - Eye pruritus [Recovering/Resolving]
  - Eye irritation [Recovering/Resolving]
  - Conjunctivitis [Recovering/Resolving]
  - Symptom recurrence [Recovering/Resolving]

NARRATIVE: CASE EVENT DATE: 202004
